FAERS Safety Report 7688956-5 (Version None)
Quarter: 2011Q3

REPORT INFORMATION
  Report Type: 
  Country: None (occurrence: None)
  Receive Date: 20110817
  Receipt Date: 20110811
  Transmission Date: 20111222
  Serious: Yes (Death, Hospitalization, Other)
  Sender: FDA-Public Use
  Company Number: PHHY2011BR72222

PATIENT
  Age: 9 Year
  Sex: Female
  Weight: 47 kg

DRUGS (1)
  1. VOLTAREN [Suspect]
     Indication: BACK PAIN
     Dosage: 75 MG, UNK
     Route: 030

REACTIONS (6)
  - URINARY TRACT INFECTION [None]
  - CARDIO-RESPIRATORY ARREST [None]
  - BACK PAIN [None]
  - PULMONARY EMBOLISM [None]
  - CYANOSIS [None]
  - SYNCOPE [None]
